FAERS Safety Report 25393282 (Version 1)
Quarter: 2025Q2

REPORT INFORMATION
  Report Type: Spontaneous
  Country: IN (occurrence: None)
  Receive Date: 20250604
  Receipt Date: 20250604
  Transmission Date: 20250716
  Serious: Yes (Hospitalization, Other)
  Sender: MAIA PHARMACEUTICALS
  Company Number: IN-MAIA Pharmaceuticals, Inc.-MAI202505-000071

PATIENT
  Age: 68 Year
  Sex: Male

DRUGS (1)
  1. BACLOFEN [Suspect]
     Active Substance: BACLOFEN
     Indication: Hiccups
     Route: 065
     Dates: start: 20250202

REACTIONS (4)
  - Rebound psychosis [Unknown]
  - Toxicity to various agents [Unknown]
  - Toxic encephalopathy [Recovered/Resolved]
  - Product use in unapproved indication [Unknown]

NARRATIVE: CASE EVENT DATE: 20250201
